FAERS Safety Report 15371455 (Version 1)
Quarter: 2018Q3

REPORT INFORMATION
  Report Type: Spontaneous
  Country: US (occurrence: US)
  Receive Date: 20180905
  Receipt Date: 20180905
  Transmission Date: 20181010
  Serious: No
  Sender: FDA-Public Use
  Company Number: None

PATIENT
  Age: 74 Year
  Sex: Female

DRUGS (1)
  1. REPATHA [Suspect]
     Active Substance: EVOLOCUMAB
     Indication: TYPE V HYPERLIPIDAEMIA
     Dates: start: 20180531

REACTIONS (4)
  - Infection [None]
  - Wheezing [None]
  - Bronchitis [None]
  - Dyspnoea [None]

NARRATIVE: CASE EVENT DATE: 20180904
